FAERS Safety Report 5817616-8 (Version None)
Quarter: 2008Q3

REPORT INFORMATION
  Report Type: 
  Country: None (occurrence: None)
  Receive Date: 20080717
  Receipt Date: 20080708
  Transmission Date: 20090109
  Serious: Yes (Hospitalization, Other)
  Sender: FDA-Public Use
  Company Number: 2008-02336

PATIENT
  Age: 80 Year
  Sex: Male

DRUGS (2)
  1. VELCADE [Suspect]
     Indication: MULTIPLE MYELOMA
     Dosage: 1.3 MG/M2, INTRAVENOUS
     Route: 042
     Dates: start: 20080519, end: 20080529
  2. DEXAMETHASONE TAB [Suspect]
     Indication: MULTIPLE MYELOMA
     Dates: start: 20080519, end: 20080529

REACTIONS (11)
  - CONDITION AGGRAVATED [None]
  - DIARRHOEA [None]
  - ENTEROCOLITIS HAEMORRHAGIC [None]
  - HYPOKALAEMIA [None]
  - HYPONATRAEMIA [None]
  - LOWER GASTROINTESTINAL HAEMORRHAGE [None]
  - NERVOUS SYSTEM DISORDER [None]
  - PALLOR [None]
  - PANCYTOPENIA [None]
  - RENAL FAILURE CHRONIC [None]
  - RESPIRATORY TRACT INFECTION [None]
